FAERS Safety Report 15560446 (Version 1)
Quarter: 2018Q4

REPORT INFORMATION
  Report Type: Spontaneous
  Country: US (occurrence: US)
  Receive Date: 20181028
  Receipt Date: 20181028
  Transmission Date: 20190205
  Serious: Yes (Other)
  Sender: FDA-Public Use
  Company Number: None

PATIENT
  Age: 49 Year
  Sex: Female
  Weight: 65.25 kg

DRUGS (8)
  1. IBUPROFEN. [Concomitant]
     Active Substance: IBUPROFEN
  2. BUPRENORPHINE/NALOXONE 8MG/2MG AN 415 [Suspect]
     Active Substance: BUPRENORPHINE HYDROCHLORIDE\NALOXONE HYDROCHLORIDE
     Indication: DRUG DEPENDENCE
     Dosage: ?          QUANTITY:30 TABLET(S);?
     Route: 060
  3. ESTRODIAL [Concomitant]
     Active Substance: ESTRADIOL
  4. ZOLOFT [Concomitant]
     Active Substance: SERTRALINE HYDROCHLORIDE
  5. QUETIAPINE. [Concomitant]
     Active Substance: QUETIAPINE
  6. WELLBUTRIN [Concomitant]
     Active Substance: BUPROPION HYDROCHLORIDE
  7. GEMFIBROZIL. [Concomitant]
     Active Substance: GEMFIBROZIL
  8. TYLENOL [Concomitant]
     Active Substance: ACETAMINOPHEN

REACTIONS (3)
  - Therapeutic response changed [None]
  - Drug withdrawal syndrome [None]
  - Product complaint [None]

NARRATIVE: CASE EVENT DATE: 20181020
